FAERS Safety Report 8548100-9 (Version None)
Quarter: 2012Q3

REPORT INFORMATION
  Report Type: 
  Country: None (occurrence: None)
  Receive Date: 20120730
  Receipt Date: 20120717
  Transmission Date: 20120928
  Serious: Yes (Hospitalization, Disabling, Other)
  Sender: FDA-Public Use
  Company Number: US-009507513-1203USA03407

PATIENT

DRUGS (6)
  1. FOSAMAX PLUS D [Suspect]
     Dosage: 70MG/2800IU
     Route: 048
     Dates: start: 20051013
  2. HORMONES (UNSPECIFIED) [Concomitant]
     Dates: start: 19950101
  3. FOSAMAX [Suspect]
     Indication: OSTEOPENIA
     Dosage: 10 MG
     Route: 048
  4. FOSAMAX [Suspect]
     Dosage: 70 MG, QW
     Route: 048
     Dates: start: 20021206, end: 20100101
  5. FOSAMAX [Suspect]
     Dosage: 70 MG
     Route: 048
     Dates: start: 20080807
  6. ALENDRONATE SODIUM [Suspect]
     Dosage: 70MG
     Dates: start: 20090208

REACTIONS (35)
  - PATELLA FRACTURE [None]
  - ADVERSE EVENT [None]
  - CONJUNCTIVAL HAEMORRHAGE [None]
  - FALL [None]
  - STRESS FRACTURE [None]
  - OCCULT BLOOD POSITIVE [None]
  - HYPOPHOSPHATAEMIA [None]
  - OSTEOPOROSIS [None]
  - SEBORRHOEIC KERATOSIS [None]
  - URINARY INCONTINENCE [None]
  - LEUKOCYTOSIS [None]
  - NAUSEA [None]
  - JOINT INJURY [None]
  - MONOCLONAL GAMMOPATHY [None]
  - DRUG INEFFECTIVE [None]
  - CONTUSION [None]
  - COLONIC POLYP [None]
  - HEAD INJURY [None]
  - MUSCLE TIGHTNESS [None]
  - SUPRAVENTRICULAR EXTRASYSTOLES [None]
  - HYPOKALAEMIA [None]
  - RIB FRACTURE [None]
  - ARTHRALGIA [None]
  - FEMUR FRACTURE [None]
  - PAIN IN EXTREMITY [None]
  - LOW TURNOVER OSTEOPATHY [None]
  - TOOTH DISORDER [None]
  - HYPERCHOLESTEROLAEMIA [None]
  - IMPAIRED HEALING [None]
  - NAIL DYSTROPHY [None]
  - FRACTURE NONUNION [None]
  - DIZZINESS [None]
  - OSTEOARTHRITIS [None]
  - LIGAMENT SPRAIN [None]
  - ECZEMA [None]
